FAERS Safety Report 6806220-0 (Version None)
Quarter: 2010Q2

REPORT INFORMATION
  Report Type: 
  Country: None (occurrence: None)
  Receive Date: 20100629
  Receipt Date: 20080130
  Transmission Date: 20101027
  Serious: No
  Sender: FDA-Public Use
  Company Number: US-PFIZER INC-2008009696

PATIENT
  Age: 13 Year
  Sex: Female

DRUGS (2)
  1. ZYVOX [Suspect]
     Indication: STREPTOCOCCAL INFECTION
  2. ERYTHROMYCIN [Concomitant]

REACTIONS (2)
  - DIARRHOEA [None]
  - HAEMATOCHEZIA [None]
